FAERS Safety Report 23684194 (Version 1)
Quarter: 2024Q1

REPORT INFORMATION
  Report Type: Spontaneous
  Country: US (occurrence: US)
  Receive Date: 20240328
  Receipt Date: 20240328
  Transmission Date: 20240409
  Serious: Yes (Other)
  Sender: FDA-Public Use
  Company Number: US-Amarin Pharma  Inc-2024AMR000124

PATIENT
  Age: 73 Year
  Sex: Male

DRUGS (1)
  1. VASCEPA [Suspect]
     Active Substance: ICOSAPENT ETHYL
     Indication: Blood triglycerides increased
     Route: 048
     Dates: start: 2023

REACTIONS (5)
  - Arterial occlusive disease [Unknown]
  - Stent placement [Unknown]
  - Blood triglycerides increased [Unknown]
  - Underdose [Unknown]
  - Product size issue [Unknown]

NARRATIVE: CASE EVENT DATE: 20240301
